FAERS Safety Report 24341371 (Version 6)
Quarter: 2025Q2

REPORT INFORMATION
  Report Type: Spontaneous
  Country: CA (occurrence: CA)
  Receive Date: 20240920
  Receipt Date: 20250620
  Transmission Date: 20250717
  Serious: Yes (Other)
  Sender: PFIZER
  Company Number: CA-PFIZER INC-202300154185

PATIENT
  Age: 66 Year
  Sex: Female

DRUGS (10)
  1. RUXIENCE [Suspect]
     Active Substance: RITUXIMAB-PVVR
     Indication: Immunoglobulin G4 related disease
     Route: 042
     Dates: start: 20240314
  2. RUXIENCE [Suspect]
     Active Substance: RITUXIMAB-PVVR
     Route: 042
     Dates: start: 20240327, end: 2024
  3. RUXIENCE [Suspect]
     Active Substance: RITUXIMAB-PVVR
     Route: 042
     Dates: start: 20241122
  4. ACETAMINOPHEN [Concomitant]
     Active Substance: ACETAMINOPHEN
     Indication: Premedication
     Dates: start: 20240327, end: 20240327
  5. BISOPROLOL [Concomitant]
     Active Substance: BISOPROLOL
  6. DIPHENHYDRAMINE [Concomitant]
     Active Substance: DIPHENHYDRAMINE
     Indication: Premedication
     Dates: start: 20240327, end: 20240327
  7. FUROSEMIDE [Concomitant]
     Active Substance: FUROSEMIDE
  8. LOVASTATIN [Concomitant]
     Active Substance: LOVASTATIN
  9. METHYLPREDNISOLONE [Concomitant]
     Active Substance: METHYLPREDNISOLONE
     Indication: Premedication
     Dates: start: 20240327, end: 20240327
  10. RIVAROXABAN [Concomitant]
     Active Substance: RIVAROXABAN

REACTIONS (7)
  - Nephrolithiasis [Recovered/Resolved]
  - Renal colic [Recovered/Resolved]
  - Pneumonia [Recovered/Resolved]
  - Drug ineffective for unapproved indication [Unknown]
  - Oxygen saturation decreased [Recovering/Resolving]
  - Dizziness [Unknown]
  - Off label use [Unknown]

NARRATIVE: CASE EVENT DATE: 20240101
